FAERS Safety Report 16751603 (Version 1)
Quarter: 2019Q3

REPORT INFORMATION
  Report Type: Spontaneous
  Country: FR (occurrence: FR)
  Receive Date: 20190828
  Receipt Date: 20190828
  Transmission Date: 20191005
  Serious: Yes (Other)
  Sender: FDA-Public Use
  Company Number: FR-TEVA-2019-FR-1097771

PATIENT
  Age: 28 Year
  Sex: Female
  Weight: 54 kg

DRUGS (5)
  1. DAFALGAN CODEINE [Suspect]
     Active Substance: ACETAMINOPHEN\CODEINE PHOSPHATE
     Indication: POISONING DELIBERATE
     Dosage: 2 DOSAGE FORM
     Route: 048
     Dates: start: 20190727, end: 20190727
  2. BILASKA 20 MG, COMPRIM? [Suspect]
     Active Substance: BILASTINE
     Indication: POISONING DELIBERATE
     Dosage: 20 DOSAGE FORM
     Route: 048
     Dates: start: 20190727, end: 20190727
  3. ALPRAZOLAM. [Suspect]
     Active Substance: ALPRAZOLAM
     Indication: POISONING DELIBERATE
     Dosage: 12.5 GRAM
     Route: 048
     Dates: start: 20190727, end: 20190727
  4. CODOLIPRANE [Suspect]
     Active Substance: ACETAMINOPHEN\CODEINE PHOSPHATE
     Indication: POISONING DELIBERATE
     Dosage: 13 DOSAGE FORM
     Route: 048
     Dates: start: 20190727, end: 20190727
  5. DECONTRACTYL [MEPHENESIN] [Suspect]
     Active Substance: MEPHENESIN
     Indication: POISONING DELIBERATE
     Dosage: 7 DOSAGE FORM
     Route: 048
     Dates: start: 20190727, end: 20190727

REACTIONS (2)
  - Poisoning deliberate [Recovered/Resolved]
  - Somnolence [Recovered/Resolved]

NARRATIVE: CASE EVENT DATE: 20190727
